FAERS Safety Report 6403175-8 (Version None)
Quarter: 2009Q4

REPORT INFORMATION
  Report Type: 
  Country: None (occurrence: None)
  Receive Date: 20091013
  Receipt Date: 20091002
  Transmission Date: 20100525
  Serious: Yes (Death)
  Sender: FDA-Public Use
  Company Number: 2009SP025801

PATIENT
  Age: 29 Year
  Sex: Male

DRUGS (9)
  1. MIRTAZAPINE [Suspect]
     Indication: DEPRESSION
     Dosage: 15 MG;QD;PO
     Route: 048
     Dates: start: 20090904
  2. TOLEDOMIN (MILNACIPRAN HYDROCHLORIDE) [Suspect]
     Indication: DEPRESSION
     Dosage: 150 MG;QD;PO; 100 MG;QD;PO
     Route: 048
     Dates: start: 20090701
  3. TOLEDOMIN (MILNACIPRAN HYDROCHLORIDE) [Suspect]
     Indication: DEPRESSION
     Dosage: 150 MG;QD;PO; 100 MG;QD;PO
     Route: 048
     Dates: start: 20090801
  4. TETRAMIDE (MIANSERIN HYDROCHLORIDE) [Suspect]
     Indication: DRUG USE FOR UNKNOWN INDICATION
     Dosage: 10 MG; 30 MG;
     Dates: start: 20090529
  5. TETRAMIDE (MIANSERIN HYDROCHLORIDE) [Suspect]
     Indication: DRUG USE FOR UNKNOWN INDICATION
     Dosage: 10 MG; 30 MG;
     Dates: start: 20090724
  6. LUVOX [Suspect]
     Indication: DRUG USE FOR UNKNOWN INDICATION
     Dosage: 100 MG
     Dates: start: 20080601, end: 20090101
  7. TRAZODONE HCL [Suspect]
     Indication: DRUG USE FOR UNKNOWN INDICATION
     Dates: end: 20090529
  8. FLUNITRAZEPAM (CON.) [Concomitant]
  9. ETIZOLAM (CON.) [Concomitant]

REACTIONS (5)
  - COMPLETED SUICIDE [None]
  - FEELING ABNORMAL [None]
  - HERNIA [None]
  - INSOMNIA [None]
  - SUICIDAL IDEATION [None]
